FAERS Safety Report 19844423 (Version 1)
Quarter: 2021Q3

REPORT INFORMATION
  Report Type: Spontaneous
  Country: FR (occurrence: FR)
  Receive Date: 20210916
  Receipt Date: 20210916
  Transmission Date: 20211014
  Serious: Yes (Hospitalization)
  Sender: FDA-Public Use
  Company Number: FR-ACCORD-238565

PATIENT
  Age: 64 Year
  Sex: Male
  Weight: 63 kg

DRUGS (7)
  1. FLUOROURACIL. [Suspect]
     Active Substance: FLUOROURACIL
     Indication: LARYNGEAL CANCER
     Route: 042
     Dates: start: 20210716, end: 20210719
  2. ROSUVASTATIN/ROSUVASTATIN CALCIUM [Concomitant]
     Active Substance: ROSUVASTATIN CALCIUM
  3. KEYTRUDA [Suspect]
     Active Substance: PEMBROLIZUMAB
     Indication: LARYNGEAL CANCER
     Route: 042
     Dates: start: 20210716
  4. BISOPROLOL [Concomitant]
     Active Substance: BISOPROLOL
  5. CARBOPLATIN. [Suspect]
     Active Substance: CARBOPLATIN
     Indication: LARYNGEAL CANCER
     Route: 042
     Dates: start: 20210716
  6. AMIODARONE [Concomitant]
     Active Substance: AMIODARONE
  7. PREVISCAN [Concomitant]

REACTIONS (1)
  - Acute coronary syndrome [Recovering/Resolving]

NARRATIVE: CASE EVENT DATE: 20210719
